FAERS Safety Report 9866737 (Version 1)
Quarter: 2014Q1

REPORT INFORMATION
  Report Type: Spontaneous
  Country: US (occurrence: US)
  Receive Date: 20140204
  Receipt Date: 20140204
  Transmission Date: 20141002
  Serious: No
  Sender: FDA-Public Use
  Company Number: US-BIOGENIDEC-2014BI009057

PATIENT
  Sex: Female

DRUGS (8)
  1. TECFIDERA [Suspect]
     Indication: MULTIPLE SCLEROSIS
     Route: 048
     Dates: start: 20131119
  2. CENTRUM [Concomitant]
  3. NEURONTIN [Concomitant]
  4. TRAMADOL HCL [Concomitant]
  5. FISH OIL [Concomitant]
  6. PROVIGIL [Concomitant]
  7. VIT E [Concomitant]
  8. CALCIUM 600 + D PLUS MINERALS [Concomitant]

REACTIONS (2)
  - Urticaria [Unknown]
  - Rash [Unknown]
